FAERS Safety Report 4433772-0 (Version None)
Quarter: 2004Q3

REPORT INFORMATION
  Report Type: 
  Country: None (occurrence: None)
  Receive Date: 20040824
  Receipt Date: 20040811
  Transmission Date: 20050211
  Serious: Yes (Hospitalization)
  Sender: FDA-Public Use
  Company Number: 2004-00400FE

PATIENT
  Sex: 0

DRUGS (1)
  1. PENTASA [Suspect]

REACTIONS (4)
  - ANAEMIA HAEMOLYTIC AUTOIMMUNE [None]
  - ATRIOVENTRICULAR BLOCK [None]
  - CIRCULATORY COLLAPSE [None]
  - LYMPHADENOPATHY [None]
